FAERS Safety Report 13382370 (Version 1)
Quarter: 2017Q1

REPORT INFORMATION
  Report Type: Spontaneous
  Country: US (occurrence: US)
  Receive Date: 20170329
  Receipt Date: 20170329
  Transmission Date: 20170429
  Serious: No
  Sender: FDA-Public Use
  Company Number: US-GLAXOSMITHKLINE-US2017042496

PATIENT
  Age: 58 Year
  Sex: Female

DRUGS (5)
  1. FLOVENT [Suspect]
     Active Substance: FLUTICASONE PROPIONATE
     Indication: INFLUENZA
  2. FLOVENT [Suspect]
     Active Substance: FLUTICASONE PROPIONATE
     Indication: COUGH
     Dosage: 2 PUFF(S), BID
     Dates: start: 20170322, end: 20170324
  3. FLOVENT [Suspect]
     Active Substance: FLUTICASONE PROPIONATE
     Indication: LUNG DISORDER
  4. HUMIRA [Concomitant]
     Active Substance: ADALIMUMAB
  5. IMURAN [Concomitant]
     Active Substance: AZATHIOPRINE

REACTIONS (8)
  - Respiratory tract irritation [Unknown]
  - Intentional underdose [Unknown]
  - Pain [Recovered/Resolved]
  - Feeling jittery [Recovering/Resolving]
  - Insomnia [Recovering/Resolving]
  - Product use issue [Unknown]
  - Chest pain [Recovered/Resolved]
  - Feeling abnormal [Recovering/Resolving]

NARRATIVE: CASE EVENT DATE: 20170322
